FAERS Safety Report 8920542 (Version 3)
Quarter: 2013Q2

REPORT INFORMATION
  Report Type: Report from Study
  Country: PL (occurrence: PL)
  Receive Date: 20121122
  Receipt Date: 20130412
  Transmission Date: 20140414
  Serious: No
  Sender: FDA-Public Use
  Company Number: PL-PFIZER INC-2012289168

PATIENT
  Sex: Male
  Weight: 17.2 kg

DRUGS (1)
  1. MOROCTOCOG ALFA [Suspect]
     Indication: FACTOR VIII DEFICIENCY

REACTIONS (1)
  - No adverse event [Unknown]
